FAERS Safety Report 9295265 (Version 1)
Quarter: 2013Q1

REPORT INFORMATION
  Report Type: Spontaneous
  Country: US (occurrence: None)
  Receive Date: 20121214
  Receipt Date: 20121214
  Transmission Date: 20140127
  Serious: Yes (Life-Threatening, Hospitalization)
  Sender: FDA-Public Use
  Company Number: 1210USA006088

PATIENT
  Age: 49 Year
  Sex: Male

DRUGS (2)
  1. JANUVIA (SITAGLIPTIN PHOSPHATE) (FILM-COATED TABLET, 100MG [Suspect]
     Indication: DIABETES MELLITUS
     Route: 048
     Dates: start: 20120922
  2. METFORMIN (METFORMIN) [Concomitant]

REACTIONS (1)
  - Pancreatitis necrotising [None]
